FAERS Safety Report 6233532-4 (Version None)
Quarter: 2009Q2

REPORT INFORMATION
  Report Type: 
  Country: None (occurrence: None)
  Receive Date: 20090617
  Receipt Date: 20090616
  Transmission Date: 20091009
  Serious: Yes (Hospitalization, Other)
  Sender: FDA-Public Use
  Company Number: NL-ROXANE LABORATORIES, INC.-2009-RO-00589RO

PATIENT
  Age: 76 Year
  Sex: Female

DRUGS (7)
  1. LITHIUM CARBONATE [Suspect]
     Indication: DEPRESSION
     Dosage: 1000MG
  2. LITHIUM CARBONATE [Suspect]
     Dosage: 400MG
  3. FLUVOXAMINE MALEATE [Suspect]
     Indication: DEPRESSION
     Dosage: 50MG
  4. DICLOFENAC [Suspect]
     Indication: MUSCULOSKELETAL PAIN
     Dosage: 150MG
  5. SALINE [Concomitant]
  6. HALOPERIDOL [Concomitant]
  7. OVER THE COUNTER PAINKILLERS [Concomitant]
     Indication: PAIN

REACTIONS (5)
  - DELIRIUM [None]
  - DRUG INTERACTION [None]
  - DRUG TOXICITY [None]
  - FALL [None]
  - MUSCULOSKELETAL PAIN [None]
